FAERS Safety Report 8382634-5 (Version None)
Quarter: 2012Q2

REPORT INFORMATION
  Report Type: 
  Country: None (occurrence: None)
  Receive Date: 20120524
  Receipt Date: 20120514
  Transmission Date: 20120825
  Serious: Yes (Other)
  Sender: FDA-Public Use
  Company Number: CA-ELI_LILLY_AND_COMPANY-CA201205005273

PATIENT
  Age: 79 Year
  Sex: Female

DRUGS (7)
  1. FORTEO [Suspect]
     Dosage: 20 UG, QD
     Route: 058
     Dates: end: 20120502
  2. TOLOXIN                            /00017701/ [Concomitant]
     Dosage: 0.125 MG, UNK
  3. FERROUS SULFATE TAB [Concomitant]
     Dosage: 300 MG, UNK
  4. FOLIC ACID [Concomitant]
     Dosage: 5 MG, UNK
  5. FORTEO [Suspect]
     Indication: OSTEOPOROSIS
     Dosage: 20 UG, QD
     Route: 058
     Dates: start: 20120303
  6. METHOTREXATE [Concomitant]
     Dosage: 2.5 MG, UNK
  7. APO-HYDROXYQUINE [Concomitant]
     Dosage: 200 MG, UNK

REACTIONS (1)
  - COLORECTAL CANCER METASTATIC [None]
